FAERS Safety Report 5143773-5 (Version None)
Quarter: 2006Q4

REPORT INFORMATION
  Report Type: 
  Country: None (occurrence: None)
  Receive Date: 20061106
  Receipt Date: 20061025
  Transmission Date: 20070319
  Serious: Yes (Death)
  Sender: FDA-Public Use
  Company Number: CA-JNJFOC-20061005945

PATIENT
  Sex: Female

DRUGS (5)
  1. DURAGESIC-100 [Suspect]
     Indication: PAIN MANAGEMENT
     Route: 062
  2. MORPHINE [Concomitant]
     Route: 065
  3. DARVOCET [Concomitant]
     Dosage: 1-2 TABLETS, 2 IN 1 DAY
     Route: 065
  4. AMITRIPTYLINE HCL [Concomitant]
     Route: 065
  5. XANAX [Concomitant]
     Route: 065

REACTIONS (4)
  - ARRHYTHMIA [None]
  - BLOOD GLUCOSE FLUCTUATION [None]
  - LETHARGY [None]
  - OFF LABEL USE [None]
